FAERS Safety Report 17396398 (Version 1)
Quarter: 2020Q1

REPORT INFORMATION
  Report Type: Spontaneous
  Country: US (occurrence: US)
  Receive Date: 20200207
  Receipt Date: 20200207
  Transmission Date: 20200409
  Serious: Yes (Other)
  Sender: FDA-Public Use
  Company Number: None

PATIENT
  Age: 42 Year
  Sex: Female
  Weight: 58.5 kg

DRUGS (1)
  1. AIMOVIG [Suspect]
     Active Substance: ERENUMAB-AOOE
     Indication: MIGRAINE
     Dosage: ?          OTHER FREQUENCY:MONTHLY;?
     Route: 058
     Dates: start: 20200130, end: 20200131

REACTIONS (7)
  - Histone antibody positive [None]
  - Antineutrophil cytoplasmic antibody positive [None]
  - Peripheral swelling [None]
  - Lupus-like syndrome [None]
  - Vertigo [None]
  - Grip strength decreased [None]
  - Arthralgia [None]

NARRATIVE: CASE EVENT DATE: 20200131
